FAERS Safety Report 4774972-X (Version None)
Quarter: 2005Q3

REPORT INFORMATION
  Report Type: 
  Country: None (occurrence: None)
  Receive Date: 20050921
  Receipt Date: 20050913
  Transmission Date: 20060218
  Serious: Yes (Hospitalization, Other)
  Sender: FDA-Public Use
  Company Number: US-JNJFOC-20050903893

PATIENT
  Age: 45 Year
  Sex: Female

DRUGS (2)
  1. DURAGESIC-100 [Suspect]
     Route: 062
     Dates: start: 20030301
  2. DURAGESIC-100 [Suspect]
     Route: 062
     Dates: start: 20030301

REACTIONS (2)
  - DIABETES MELLITUS [None]
  - DRUG INEFFECTIVE [None]
